FAERS Safety Report 8766761 (Version 1)
Quarter: 2012Q4

REPORT INFORMATION
  Report Type: 
  Country: US (occurrence: US)
  Receive Date: 20120904
  Receipt Date: 20120904
  Transmission Date: 20130627
  Serious: Yes (Hospitalization)
  Sender: FDA-Public Use
  Company Number: US-BAYER-2012-089549

PATIENT
  Age: 29 Year
  Sex: Female
  Weight: 68.03 kg

DRUGS (5)
  1. YAZ [Suspect]
     Dosage: UNK
  2. ALLEGRA-D [Concomitant]
     Dosage: UNK, daily
     Route: 048
     Dates: start: 20110705
  3. SKELAXIN [Concomitant]
     Dosage: UNK UNK, At bedtime
     Dates: start: 20110705
  4. VICODIN [Concomitant]
     Dosage: 10/500 mg as needed
     Dates: start: 20110705
  5. TOPAMAX [Concomitant]
     Dosage: 75 mg, twice daily
     Route: 048
     Dates: start: 20110705

REACTIONS (1)
  - Deep vein thrombosis [None]
